FAERS Safety Report 4676516-X (Version None)
Quarter: 2005Q2

REPORT INFORMATION
  Report Type: 
  Country: None (occurrence: None)
  Receive Date: 20050525
  Receipt Date: 20050518
  Transmission Date: 20051028
  Serious: Yes (Life-Threatening, Hospitalization)
  Sender: FDA-Public Use
  Company Number: 200511601GDS

PATIENT
  Age: 69 Year
  Sex: Male

DRUGS (2)
  1. ASPRO CARDIO (ACETYLSALICYLIC ACID) [Suspect]
     Dosage: 40 MG, TOTAL DAILY, ORAL
     Route: 048
     Dates: start: 20040407
  2. CASODEX [Suspect]
     Indication: PROSTATE CANCER
     Dosage: 150 MG, TOTAL DAILY, ORAL
     Route: 048
     Dates: start: 20040816, end: 20050420

REACTIONS (2)
  - CEREBROVASCULAR ACCIDENT [None]
  - DRUG INTERACTION [None]
